FAERS Safety Report 24690921 (Version 1)
Quarter: 2024Q4

REPORT INFORMATION
  Report Type: Spontaneous
  Country: US (occurrence: US)
  Receive Date: 20241203
  Receipt Date: 20241203
  Transmission Date: 20250115
  Serious: No
  Sender: LUPIN
  Company Number: US-LUPIN PHARMACEUTICALS INC.-2024-11575

PATIENT

DRUGS (5)
  1. ALBUTEROL SULFATE [Suspect]
     Active Substance: ALBUTEROL SULFATE
     Indication: Chronic obstructive pulmonary disease
     Dosage: UNK, PRN, 2 PUFFS EVERY 4 TO 6 HOURS OR AS NEEDED
     Dates: start: 202410
  2. ALBUTEROL SULFATE [Suspect]
     Active Substance: ALBUTEROL SULFATE
     Indication: Emphysema
     Dosage: UNK, PRN, 2 PUFFS EVERY 4 TO 6 HOURS OR AS NEEDED
     Dates: start: 202410
  3. TYLENOL [Concomitant]
     Active Substance: ACETAMINOPHEN
     Indication: Product used for unknown indication
     Dosage: UNK
     Route: 065
  4. MUCINEX [Concomitant]
     Active Substance: GUAIFENESIN
     Indication: Product used for unknown indication
     Dosage: UNK
     Route: 065
  5. ASPIRIN [Concomitant]
     Active Substance: ASPIRIN
     Indication: Product used for unknown indication
     Dosage: UNK
     Route: 065

REACTIONS (3)
  - Wrong technique in product usage process [Unknown]
  - Circumstance or information capable of leading to device use error [Unknown]
  - No adverse event [Unknown]
